FAERS Safety Report 19681680 (Version 4)
Quarter: 2021Q4

REPORT INFORMATION
  Report Type: Spontaneous
  Country: US (occurrence: US)
  Receive Date: 20210810
  Receipt Date: 20211227
  Transmission Date: 20220303
  Serious: No
  Sender: FDA-Public Use
  Company Number: US-ELI_LILLY_AND_COMPANY-US202108002429

PATIENT
  Age: 13 Year
  Sex: Male

DRUGS (4)
  1. HUMATROPE [Suspect]
     Active Substance: SOMATROPIN
     Indication: Growth hormone deficiency
     Dosage: 24 MG, UNKNOWN
     Route: 065
     Dates: start: 202107
  2. HUMATROPE [Suspect]
     Active Substance: SOMATROPIN
     Indication: Growth hormone deficiency
     Dosage: 24 MG, UNKNOWN
     Route: 065
     Dates: start: 202107
  3. HUMATROPE [Suspect]
     Active Substance: SOMATROPIN
     Dosage: 24 UNK, UNKNOWN
     Route: 065
  4. HUMATROPE [Suspect]
     Active Substance: SOMATROPIN
     Dosage: 24 UNK, UNKNOWN
     Route: 065

REACTIONS (6)
  - Body mass index decreased [Unknown]
  - Drug ineffective [Unknown]
  - Injection site pain [Unknown]
  - Incorrect dose administered [Unknown]
  - Product dose omission issue [Unknown]
  - Product dose omission issue [Unknown]

NARRATIVE: CASE EVENT DATE: 20211026
